FAERS Safety Report 13843618 (Version 2)
Quarter: 2018Q1

REPORT INFORMATION
  Report Type: Spontaneous
  Country: IT (occurrence: IT)
  Receive Date: 20170808
  Receipt Date: 20180102
  Transmission Date: 20180508
  Serious: Yes (Other)
  Sender: FDA-Public Use
  Company Number: IT-PFIZER INC-2017335430

PATIENT
  Age: 79 Year
  Sex: Female

DRUGS (3)
  1. SIMVASTATIN. [Concomitant]
     Active Substance: SIMVASTATIN
     Indication: DYSLIPIDAEMIA
     Dosage: UNK
     Route: 048
  2. BASSADO [Suspect]
     Active Substance: DOXYCYCLINE HYCLATE
     Indication: STREPTOCOCCAL INFECTION
     Dosage: 100 MG, DAILY
     Route: 048
     Dates: start: 20170729, end: 20170731
  3. MENADERM /01745701/ [Concomitant]
     Indication: STREPTOCOCCAL INFECTION
     Dosage: UNK
     Route: 061
     Dates: start: 20170729, end: 20170731

REACTIONS (5)
  - Vomiting [Recovering/Resolving]
  - Malaise [Recovering/Resolving]
  - Rash [Recovering/Resolving]
  - Nausea [Recovering/Resolving]
  - Pyrexia [Recovering/Resolving]

NARRATIVE: CASE EVENT DATE: 20170731
